FAERS Safety Report 6640492-0 (Version None)
Quarter: 2010Q1

REPORT INFORMATION
  Report Type: 
  Country: None (occurrence: None)
  Receive Date: 20100318
  Receipt Date: 20100305
  Transmission Date: 20100710
  Serious: Yes (Death, Hospitalization)
  Sender: FDA-Public Use
  Company Number: US-PFIZER INC-2010024882

PATIENT
  Sex: Female
  Weight: 56 kg

DRUGS (6)
  1. EXEMESTANE [Suspect]
     Indication: BREAST CANCER
     Dosage: 25 MG, 1X/DAY
     Route: 048
     Dates: start: 20050708, end: 20100118
  2. ASPIRIN [Concomitant]
     Dosage: 81 MG, 1X/DAY
     Route: 048
  3. TOPROL-XL [Concomitant]
     Dosage: 25 MG, 1X/DAY 1/2 TABLET
     Route: 048
  4. PREDNISONE [Concomitant]
     Indication: URTICARIA
     Dosage: 20 MG, AS NEEDED
     Route: 048
  5. FOSAMAX [Concomitant]
     Dosage: 70 MG, WEEKLY
     Route: 048
  6. LEVOXYL [Concomitant]
     Dosage: 75 UG, 1X/DAY
     Route: 048

REACTIONS (1)
  - CEREBRAL ISCHAEMIA [None]
